FAERS Safety Report 8605034-9 (Version None)
Quarter: 2012Q3

REPORT INFORMATION
  Report Type: 
  Country: None (occurrence: None)
  Receive Date: 20120820
  Receipt Date: 20120809
  Transmission Date: 20120928
  Serious: Yes (Hospitalization)
  Sender: FDA-Public Use
  Company Number: US-BAYER-2012-082796

PATIENT
  Age: 30 Year
  Sex: Female
  Weight: 47.166 kg

DRUGS (10)
  1. CITALOPRAM HYDROBROMIDE [Concomitant]
     Dosage: 40 MG, UNK
     Dates: start: 20111212
  2. MAXALT [Concomitant]
     Indication: MIGRAINE
  3. AZITHROMYCIN [Concomitant]
     Dosage: 250 MG, UNK
     Dates: start: 20120202
  4. DROSPIRENONE AND ETHINYL ESTRADIOL [Suspect]
  5. ATIVAN [Concomitant]
     Dosage: UNK
     Dates: start: 20111212
  6. ALPRAZOLAM [Concomitant]
     Dosage: 0.5 MG, UNK
     Dates: start: 20111214
  7. FLUOXETINE HCL [Concomitant]
     Dosage: 20 MG, QD
     Route: 048
     Dates: start: 20111212
  8. ZOCOR [Concomitant]
  9. YAZ [Suspect]
  10. PROZAC [Concomitant]
     Indication: INSOMNIA

REACTIONS (2)
  - BRAIN STEM INFARCTION [None]
  - CEREBELLAR ARTERY OCCLUSION [None]
